FAERS Safety Report 15709714 (Version 1)
Quarter: 2018Q4

REPORT INFORMATION
  Report Type: Spontaneous
  Country: US (occurrence: US)
  Receive Date: 20181211
  Receipt Date: 20181211
  Transmission Date: 20190205
  Serious: Yes (Death)
  Sender: FDA-Public Use
  Company Number: US-PFIZER INC-2018504398

PATIENT
  Age: 35 Year
  Sex: Female

DRUGS (1)
  1. BACTERIOSTATIC SODIUM CHLORIDE [Suspect]
     Active Substance: SODIUM CHLORIDE
     Indication: THERAPEUTIC EMESIS
     Dosage: UNK

REACTIONS (4)
  - Pulmonary oedema [Fatal]
  - Toxicity to various agents [Fatal]
  - Mental status changes [Fatal]
  - Haemorrhage intracranial [Fatal]
